FAERS Safety Report 9700651 (Version 3)
Quarter: 2014Q1

REPORT INFORMATION
  Report Type: Report from Study
  Country: US (occurrence: US)
  Receive Date: 20131121
  Receipt Date: 20140103
  Transmission Date: 20141002
  Serious: Yes (Other)
  Sender: FDA-Public Use
  Company Number: US-JNJFOC-20131108021

PATIENT
  Age: 30 Year
  Sex: Female

DRUGS (4)
  1. REMICADE [Suspect]
     Indication: COLITIS ULCERATIVE
     Route: 042
  2. REMICADE [Suspect]
     Indication: COLITIS ULCERATIVE
     Route: 042
     Dates: start: 20130121, end: 20130121
  3. CYCLOBENZAPRINE [Concomitant]
     Indication: SLEEP DISORDER THERAPY
     Route: 065
     Dates: start: 2011
  4. LEVOTHYROXINE [Concomitant]
     Indication: HYPOTHYROIDISM
     Route: 065
     Dates: start: 2009

REACTIONS (4)
  - Colectomy total [Unknown]
  - Serum sickness [Recovered/Resolved]
  - Migraine [Recovered/Resolved]
  - Drug hypersensitivity [Unknown]
